FAERS Safety Report 6669579-3 (Version None)
Quarter: 2010Q2

REPORT INFORMATION
  Report Type: 
  Country: None (occurrence: None)
  Receive Date: 20100406
  Receipt Date: 20100325
  Transmission Date: 20101027
  Serious: Yes (Hospitalization)
  Sender: FDA-Public Use
  Company Number: IT-PFIZER INC-2010038674

PATIENT
  Sex: Male

DRUGS (3)
  1. VINCRISTINE SULFATE [Suspect]
  2. DOXORUBICIN HCL [Suspect]
  3. ETOPOSIDE [Suspect]

REACTIONS (1)
  - PNEUMONIA [None]
